FAERS Safety Report 17371693 (Version 6)
Quarter: 2020Q3

REPORT INFORMATION
  Report Type: Spontaneous
  Country: CZ (occurrence: CZ)
  Receive Date: 20200205
  Receipt Date: 20200709
  Transmission Date: 20201102
  Serious: Yes (Hospitalization, Other)
  Sender: FDA-Public Use
  Company Number: CZ-CELLTRION INC.-2020CZ017692

PATIENT

DRUGS (42)
  1. ETOPOSIDE. [Suspect]
     Active Substance: ETOPOSIDE
     Dosage: UNK
     Route: 065
  2. CYTARABINE. [Suspect]
     Active Substance: CYTARABINE
     Dosage: TWO CYCLES OF CNS PENETRATING CHEMOTHERAPY (MTX AND ARAC)
  3. BENDAMUSTINE [Suspect]
     Active Substance: BENDAMUSTINE
     Dosage: UNK
     Route: 065
     Dates: start: 201902
  4. METHOTREXATE. [Suspect]
     Active Substance: METHOTREXATE
     Dosage: TWO CYCLES OF CNS PENETRATING CHEMOTHERAPY (MTX AND ARAC)
  5. RITUXIMAB (UNKNOWN) [Suspect]
     Active Substance: RITUXIMAB
     Dosage: COMPLETED RESCUE THERAPY BY THE ADMINISTRATION OF THE 3RD CYCLE OF RICE
  6. CYTARABINE. [Suspect]
     Active Substance: CYTARABINE
     Dosage: HIGH DOSE
     Route: 065
     Dates: start: 201902
  7. BENDAMUSTINE [Suspect]
     Active Substance: BENDAMUSTINE
     Dosage: SECOND CYCLE OF R?B
     Dates: start: 201901
  8. BENDAMUSTINE [Suspect]
     Active Substance: BENDAMUSTINE
     Dosage: UNK
     Route: 065
  9. ETOPOSIDE. [Suspect]
     Active Substance: ETOPOSIDE
     Indication: MANTLE CELL LYMPHOMA
     Dosage: INITIATE RESCUE THERAPY WITH PLATINUM REGIMEN (R?ICE; RITUXIMAB, IPHOSPHAMIDE, CARBOPLATIN, ETOPOSID
     Route: 065
  10. IFOSFAMIDE. [Suspect]
     Active Substance: IFOSFAMIDE
     Indication: MANTLE CELL LYMPHOMA
     Dosage: INITIATE RESCUE THERAPY WITH PLATINUM REGIMEN (R?ICE; RITUXIMAB, IPHOSPHAMIDE, CARBOPLATIN, ETOPOSID
     Route: 065
  11. IBRUTINIB [Concomitant]
     Active Substance: IBRUTINIB
     Dosage: UNK
     Route: 065
     Dates: start: 201905
  12. RITUXIMAB (UNKNOWN) [Suspect]
     Active Substance: RITUXIMAB
     Dosage: SECOND CYCLE OF R?B
     Dates: start: 201901
  13. MELPHALAN. [Suspect]
     Active Substance: MELPHALAN
     Indication: MANTLE CELL LYMPHOMA
     Dosage: UNK
     Route: 065
  14. CYTARABINE. [Suspect]
     Active Substance: CYTARABINE
     Dosage: FOLLOWING CYCLE OF HD ARAC WAS FORTIFIED WITH BENDAMUSTINE (SO CALLED R?BAC)
  15. BENDAMUSTINE [Suspect]
     Active Substance: BENDAMUSTINE
     Dosage: FOLLOWING CYCLE OF HD ARAC WAS THUS FORTIFIED WITH BENDAMUSTINE (SO CALLED R?BAC)
  16. IFOSFAMIDE. [Suspect]
     Active Substance: IFOSFAMIDE
     Dosage: UNK, CYCLIC
     Route: 065
  17. RITUXIMAB (UNKNOWN) [Suspect]
     Active Substance: RITUXIMAB
     Dosage: UNK, CYCLIC
     Route: 065
  18. ETOPOSIDE. [Suspect]
     Active Substance: ETOPOSIDE
     Dosage: UNK, CYCLIC
     Route: 065
  19. CYTARABINE. [Suspect]
     Active Substance: CYTARABINE
     Dosage: UNK
     Route: 065
  20. BENDAMUSTINE [Suspect]
     Active Substance: BENDAMUSTINE
     Indication: MANTLE CELL LYMPHOMA
     Dosage: INITIATED THIRD LINE TREATMENT WITH A COMBINATION OF RITUXIMAB AND BENDAMUSTINE (R?B REGIMEN).
  21. CARBOPLATIN. [Suspect]
     Active Substance: CARBOPLATIN
     Dosage: UNK, CYCLIC
     Route: 065
  22. RITUXIMAB (UNKNOWN) [Suspect]
     Active Substance: RITUXIMAB
     Dosage: 4 DOSES OF RITUXIMAB 385MG/M2 IN WEEKLY INTERVALS
     Route: 065
  23. CARMUSTINE. [Suspect]
     Active Substance: CARMUSTINE
     Indication: MANTLE CELL LYMPHOMA
     Dosage: UNK
     Route: 065
  24. CYTARABINE. [Suspect]
     Active Substance: CYTARABINE
     Indication: MANTLE CELL LYMPHOMA
     Dosage: HIGH DOSE CYTARABINE (HD ARAC) WITH RITUXIMAB
     Route: 065
     Dates: start: 201902
  25. CYCLOPHOSPHAMIDE. [Suspect]
     Active Substance: CYCLOPHOSPHAMIDE
     Indication: MANTLE CELL LYMPHOMA
     Dosage: UNK
     Route: 065
  26. PREDNISONE. [Suspect]
     Active Substance: PREDNISONE
     Indication: MANTLE CELL LYMPHOMA
     Dosage: UNK
     Route: 065
  27. METHOTREXATE. [Suspect]
     Active Substance: METHOTREXATE
     Indication: MANTLE CELL LYMPHOMA
     Dosage: ONE CYCLE OF HIGH DOSE METHOTREXATE (HD MTX)
     Dates: start: 201901
  28. RITUXIMAB (UNKNOWN) [Suspect]
     Active Substance: RITUXIMAB
     Dosage: UNK
     Route: 065
     Dates: start: 201803
  29. RITUXIMAB (UNKNOWN) [Suspect]
     Active Substance: RITUXIMAB
     Dosage: 375 MG/M2 (EVERY WEEK)
     Route: 065
     Dates: start: 201712
  30. ETOPOSIDE. [Suspect]
     Active Substance: ETOPOSIDE
     Dosage: COMPLETED RESCUE THERAPY BY THE ADMINISTRATION OF THE 3RD CYCLE OF RICE
     Route: 065
  31. DOXORUBICIN HYDROCHLORIDE. [Suspect]
     Active Substance: DOXORUBICIN HYDROCHLORIDE
     Indication: MANTLE CELL LYMPHOMA
     Dosage: UNK
     Route: 065
  32. VINCRISTINE [Suspect]
     Active Substance: VINCRISTINE
     Indication: MANTLE CELL LYMPHOMA
     Route: 065
  33. IFOSFAMIDE. [Suspect]
     Active Substance: IFOSFAMIDE
     Dosage: COMPLETED RESCUE THERAPY BY THE ADMINISTRATION OF THE 3RD CYCLE OF RICE
     Route: 065
  34. RITUXIMAB (UNKNOWN) [Suspect]
     Active Substance: RITUXIMAB
     Indication: MANTLE CELL LYMPHOMA STAGE IV
     Dosage: INITIATED RESCUE THERAPY WITH PLATINUM REGIMEN (R?ICE; RITUXIMAB, IPHOSPHAMIDE, CARBOPLATIN, ETOPOSI
  35. RITUXIMAB (UNKNOWN) [Suspect]
     Active Substance: RITUXIMAB
     Dosage: GIVEN THIRD LINE TREATMENT WITH A COMBINATION OF RITUXIMAB AND BENDAMUSTINE (R?B REGIMEN)
  36. RITUXIMAB (UNKNOWN) [Suspect]
     Active Substance: RITUXIMAB
     Dosage: HIGH DOSE CYTARABINE (HD ARAC) WITH RITUXIMAB
     Route: 065
     Dates: start: 201902
  37. RITUXIMAB (UNKNOWN) [Suspect]
     Active Substance: RITUXIMAB
     Dosage: UNK
     Route: 065
     Dates: start: 201902
  38. CYTARABINE. [Suspect]
     Active Substance: CYTARABINE
     Dosage: UNK
     Route: 065
     Dates: start: 201902
  39. CARBOPLATIN. [Suspect]
     Active Substance: CARBOPLATIN
     Indication: MANTLE CELL LYMPHOMA
     Dosage: INITIATE RESCUE THERAPY WITH PLATINUM REGIMEN (R?ICE; RITUXIMAB, IPHOSPHAMIDE, CARBOPLATIN, ETOPOSID
  40. CARBOPLATIN. [Suspect]
     Active Substance: CARBOPLATIN
     Dosage: COMPLETED RESCUE THERAPY BY THE ADMINISTRATION OF THE 3RD CYCLE OF RICE
  41. IBRUTINIB [Concomitant]
     Active Substance: IBRUTINIB
     Dosage: UNK
     Route: 065
     Dates: start: 201804
  42. METHOTREXATE. [Concomitant]
     Active Substance: METHOTREXATE
     Indication: MANTLE CELL LYMPHOMA
     Dosage: UNK
     Route: 065
     Dates: start: 201901

REACTIONS (15)
  - Lymphadenopathy [Unknown]
  - Neutropenia [Unknown]
  - Product use in unapproved indication [Unknown]
  - Lymphoma [Recovered/Resolved]
  - Hemiparesis [Unknown]
  - Disease progression [Recovered/Resolved]
  - Dysarthria [Unknown]
  - Metastases to central nervous system [Unknown]
  - Mantle cell lymphoma [Unknown]
  - Mantle cell lymphoma [Unknown]
  - Drug ineffective [Unknown]
  - Off label use [Unknown]
  - Headache [Unknown]
  - Malignant neoplasm progression [Unknown]
  - Renal failure [Unknown]

NARRATIVE: CASE EVENT DATE: 201805
